FAERS Safety Report 8901178 (Version 2)
Quarter: 2014Q2

REPORT INFORMATION
  Report Type: Spontaneous
  Country: US (occurrence: US)
  Receive Date: 20121109
  Receipt Date: 20140501
  Transmission Date: 20141212
  Serious: Yes (Other)
  Sender: FDA-Public Use
  Company Number: US-ROCHE-743279

PATIENT
  Age: 52 Year
  Sex: Female
  Weight: 85.7 kg

DRUGS (2)
  1. ACCUTANE [Suspect]
     Indication: ACNE
     Route: 048
  2. ACCUTANE [Suspect]
     Dosage: DOSE INCREASED
     Route: 048
     Dates: start: 200111, end: 200203

REACTIONS (5)
  - Gastrointestinal injury [Unknown]
  - Crohn^s disease [Unknown]
  - Inflammatory bowel disease [Unknown]
  - Pyoderma gangrenosum [Unknown]
  - Irritable bowel syndrome [Unknown]
